FAERS Safety Report 11820541 (Version 5)
Quarter: 2016Q4

REPORT INFORMATION
  Report Type: Spontaneous
  Country: US (occurrence: US)
  Receive Date: 20151210
  Receipt Date: 20161017
  Transmission Date: 20170206
  Serious: No
  Sender: FDA-Public Use
  Company Number: US-JNJFOC-20150707387

PATIENT
  Age: 66 Year
  Sex: Male

DRUGS (3)
  1. AMLODIPINE [Concomitant]
     Active Substance: AMLODIPINE BESYLATE
     Route: 048
     Dates: start: 20150827
  2. IMBRUVICA [Suspect]
     Active Substance: IBRUTINIB
     Indication: CHRONIC LYMPHOCYTIC LEUKAEMIA
     Route: 048
     Dates: start: 20150603, end: 20160422
  3. IMBRUVICA [Suspect]
     Active Substance: IBRUTINIB
     Indication: CHRONIC LYMPHOCYTIC LEUKAEMIA
     Route: 048
     Dates: start: 20160428

REACTIONS (17)
  - Eye discharge [Not Recovered/Not Resolved]
  - Productive cough [Not Recovered/Not Resolved]
  - Dry eye [Not Recovered/Not Resolved]
  - Eye infection [Not Recovered/Not Resolved]
  - Diarrhoea [Recovering/Resolving]
  - Cough [Unknown]
  - Gingival pain [Not Recovered/Not Resolved]
  - Tongue blistering [Recovering/Resolving]
  - Skin exfoliation [Recovering/Resolving]
  - Diarrhoea [Unknown]
  - Pyrexia [Unknown]
  - Gingival swelling [Not Recovered/Not Resolved]
  - Dry skin [Recovering/Resolving]
  - Acne [Recovered/Resolved]
  - Anxiety [Unknown]
  - Ocular hyperaemia [Not Recovered/Not Resolved]
  - Insomnia [Not Recovered/Not Resolved]

NARRATIVE: CASE EVENT DATE: 2015
